FAERS Safety Report 5562921-6 (Version None)
Quarter: 2007Q4

REPORT INFORMATION
  Report Type: 
  Country: None (occurrence: None)
  Receive Date: 20071211
  Receipt Date: 20071211
  Transmission Date: 20080405
  Serious: Yes (Disabling)
  Sender: FDA-Public Use
  Company Number: None

PATIENT
  Sex: Female
  Weight: 50 kg

DRUGS (2)
  1. METOCLOPRAMIDE [Suspect]
     Indication: NAUSEA
     Dosage: 10 MG TID IV BOLUS   3 DOSES
     Route: 040
     Dates: start: 20071123, end: 20071123
  2. METOCLOPRAMIDE [Suspect]
     Indication: VOMITING
     Dosage: 10 MG TID IV BOLUS   3 DOSES
     Route: 040
     Dates: start: 20071123, end: 20071123

REACTIONS (4)
  - AGITATION [None]
  - OCULOGYRIC CRISIS [None]
  - PHOTOPHOBIA [None]
  - PHOTOSENSITIVITY REACTION [None]
